FAERS Safety Report 5733890-0 (Version None)
Quarter: 2008Q2

REPORT INFORMATION
  Report Type: 
  Country: None (occurrence: None)
  Receive Date: 20080509
  Receipt Date: 20080428
  Transmission Date: 20081010
  Serious: Yes (Other)
  Sender: FDA-Public Use
  Company Number: US-PFIZER INC-2008036773

PATIENT
  Age: 79 Year
  Sex: Female

DRUGS (6)
  1. ATORVASTATIN [Suspect]
  2. VITAMIN CAP [Concomitant]
     Dosage: FREQ:DAILY
  3. CALCIUM WITH VITAMIN D [Concomitant]
     Dosage: FREQ:DAILY
  4. ACETYLSALICYLIC ACID SRT [Concomitant]
  5. HYDROCHLOROTHIAZIDE [Concomitant]
  6. ALENDRONATE SODIUM [Concomitant]

REACTIONS (5)
  - ABNORMAL BEHAVIOUR [None]
  - ANGER [None]
  - ANXIETY [None]
  - PARANOIA [None]
  - SOCIAL AVOIDANT BEHAVIOUR [None]
